FAERS Safety Report 8089844 (Version 2)
Quarter: 2013Q1

REPORT INFORMATION
  Report Type: Spontaneous
  Country: US (occurrence: US)
  Receive Date: 20110815
  Receipt Date: 20130314
  Transmission Date: 20140127
  Serious: Yes (Hospitalization, Other)
  Sender: FDA-Public Use
  Company Number: US-ROCHE-778363

PATIENT
  Sex: Male
  Weight: 67.1 kg

DRUGS (1)
  1. ACCUTANE [Suspect]
     Indication: ACNE
     Route: 065
     Dates: start: 1987, end: 1990

REACTIONS (17)
  - Crohn^s disease [Unknown]
  - Colitis ulcerative [Unknown]
  - Supraventricular tachycardia [Unknown]
  - Anaphylactic reaction [Unknown]
  - Diarrhoea [Unknown]
  - Abdominal pain [Unknown]
  - Weight decreased [Unknown]
  - Intestinal haemorrhage [Unknown]
  - Intestinal obstruction [Unknown]
  - Anal abscess [Unknown]
  - Vomiting [Unknown]
  - Anal fistula [Unknown]
  - Urticaria [Unknown]
  - Intestinal perforation [Unknown]
  - Calcium deficiency [Unknown]
  - Iron deficiency anaemia [Unknown]
  - Nephrolithiasis [Unknown]
